FAERS Safety Report 18740728 (Version 3)
Quarter: 2021Q1

REPORT INFORMATION
  Report Type: Spontaneous
  Country: GB (occurrence: GB)
  Receive Date: 20210114
  Receipt Date: 20210204
  Transmission Date: 20210419
  Serious: Yes (Death, Hospitalization)
  Sender: FDA-Public Use
  Company Number: GB-MYLANLABS-2020M1054519

PATIENT
  Age: 59 Year
  Sex: Male

DRUGS (1)
  1. CLOZARIL [Suspect]
     Active Substance: CLOZAPINE
     Indication: SCHIZOPHRENIA
     Dosage: UNK
     Route: 048
     Dates: start: 20031101

REACTIONS (4)
  - Eosinophilia [Unknown]
  - Cerebrovascular accident [Fatal]
  - SARS-CoV-2 test positive [Fatal]
  - Differential white blood cell count abnormal [Recovering/Resolving]

NARRATIVE: CASE EVENT DATE: 20200603
